FAERS Safety Report 9035531 (Version 1)
Quarter: 2013Q1

REPORT INFORMATION
  Report Type: Spontaneous
  Country: US (occurrence: US)
  Receive Date: 20130129
  Receipt Date: 20130129
  Transmission Date: 20140127
  Serious: No
  Sender: FDA-Public Use
  Company Number: US-GLAXOSMITHKLINE-A0982334A

PATIENT
  Age: 63 Year
  Sex: Female

DRUGS (2)
  1. MEPRON [Suspect]
     Indication: BABESIOSIS
     Dosage: 750MCG TWICE PER DAY
     Route: 048
     Dates: start: 20120502
  2. ERYTHROMYCIN [Concomitant]

REACTIONS (1)
  - Muscle spasms [Not Recovered/Not Resolved]
